FAERS Safety Report 13458292 (Version 1)
Quarter: 2017Q2

REPORT INFORMATION
  Report Type: Spontaneous
  Country: AR (occurrence: AR)
  Receive Date: 20170419
  Receipt Date: 20170419
  Transmission Date: 20170830
  Serious: Yes (Other)
  Sender: FDA-Public Use
  Company Number: AR-PFIZER INC-2017170317

PATIENT
  Age: 80 Year
  Sex: Female

DRUGS (1)
  1. METHOTREXATE SODIUM. [Suspect]
     Active Substance: METHOTREXATE SODIUM
     Indication: RHEUMATOID ARTHRITIS
     Dosage: 5 UNK, UNK
     Dates: start: 2000

REACTIONS (3)
  - Gait disturbance [Recovering/Resolving]
  - Retinal injury [Unknown]
  - Arthropathy [Unknown]

NARRATIVE: CASE EVENT DATE: 2006
